FAERS Safety Report 9505893 (Version 1)
Quarter: 2013Q1

REPORT INFORMATION
  Report Type: Spontaneous
  Country: US (occurrence: None)
  Receive Date: 20130227
  Receipt Date: 20130227
  Transmission Date: 20140127
  Serious: Yes (Hospitalization)
  Sender: FDA-Public Use
  Company Number: DEP_00755_2012

PATIENT
  Sex: Female

DRUGS (2)
  1. GRALISE [Suspect]
     Indication: NEURALGIA
     Route: 048
     Dates: end: 201210
  2. GRALISE [Suspect]
     Indication: OFF LABEL USE
     Route: 048
     Dates: end: 201210

REACTIONS (1)
  - Constipation [None]
